FAERS Safety Report 6897678-X (Version None)
Quarter: 2010Q3

REPORT INFORMATION
  Report Type: 
  Country: None (occurrence: None)
  Receive Date: 20100802
  Receipt Date: 20070629
  Transmission Date: 20110219
  Serious: No
  Sender: FDA-Public Use
  Company Number: US-PFIZER INC-2007054280

PATIENT
  Sex: Male
  Weight: 102.3 kg

DRUGS (5)
  1. LYRICA [Suspect]
     Indication: NEURALGIA
  2. DURAGESIC-100 [Concomitant]
     Route: 061
  3. VICODIN [Concomitant]
  4. PLETAL [Concomitant]
  5. WARFARIN SODIUM [Concomitant]

REACTIONS (4)
  - HEART RATE DECREASED [None]
  - PAIN [None]
  - PERSECUTORY DELUSION [None]
  - WITHDRAWAL SYNDROME [None]
